FAERS Safety Report 4377103-3 (Version None)
Quarter: 2004Q2

REPORT INFORMATION
  Report Type: 
  Country: None (occurrence: None)
  Receive Date: 20040608
  Receipt Date: 20040603
  Transmission Date: 20050107
  Serious: Yes (Life-Threatening)
  Sender: FDA-Public Use
  Company Number: THQ2004A00497

PATIENT
  Age: 44 Year
  Sex: Male

DRUGS (2)
  1. LANSOPRAZOLE [Suspect]
     Indication: DYSPEPSIA
     Dosage: 15 MG (1D) PER ORAL
     Route: 048
     Dates: start: 20040402, end: 20040503
  2. PAROXETINE HCL [Concomitant]

REACTIONS (4)
  - DIZZINESS [None]
  - FALL [None]
  - HEAD INJURY [None]
  - HEADACHE [None]
